FAERS Safety Report 5383105-0 (Version None)
Quarter: 2007Q3

REPORT INFORMATION
  Report Type: 
  Country: None (occurrence: None)
  Receive Date: 20070710
  Receipt Date: 20070628
  Transmission Date: 20080115
  Serious: Yes (Hospitalization)
  Sender: FDA-Public Use
  Company Number: US-GENENTECH-243725

PATIENT
  Sex: Male
  Weight: 68.027 kg

DRUGS (7)
  1. BEVACIZUMAB [Suspect]
     Indication: BILE DUCT CANCER
     Dosage: 10 MG/KG, UNK
     Route: 042
     Dates: start: 20070523
  2. GEMCITABINE HCL [Suspect]
     Indication: BILE DUCT CANCER
     Dosage: 1000 MG/M2, UNK
     Route: 042
     Dates: start: 20070523
  3. OXALIPLATIN [Suspect]
     Indication: BILE DUCT CANCER
     Dosage: 85 MG/M2, UNK
     Route: 042
     Dates: start: 20070523
  4. ATIVAN [Concomitant]
     Indication: DRUG USE FOR UNKNOWN INDICATION
     Dates: start: 20070516
  5. COMPAZINE [Concomitant]
     Indication: DRUG USE FOR UNKNOWN INDICATION
     Dates: start: 20070516
  6. TYLENOL [Concomitant]
     Indication: DRUG USE FOR UNKNOWN INDICATION
     Dates: start: 20070502
  7. ZOFRAN [Concomitant]
     Indication: DRUG USE FOR UNKNOWN INDICATION
     Dates: start: 20070516

REACTIONS (1)
  - PYREXIA [None]
